FAERS Safety Report 21908448 (Version 11)
Quarter: 2025Q3

REPORT INFORMATION
  Report Type: Report from Study
  Country: CA (occurrence: CA)
  Receive Date: 20230125
  Receipt Date: 20250818
  Transmission Date: 20251020
  Serious: Yes (Hospitalization, Other)
  Sender: TAKEDA
  Company Number: CA-TAKEDA-2019TUS039375

PATIENT
  Age: 62 Year
  Sex: Male

DRUGS (24)
  1. VEDOLIZUMAB [Suspect]
     Active Substance: VEDOLIZUMAB
     Indication: Crohn^s disease
  2. VEDOLIZUMAB [Suspect]
     Active Substance: VEDOLIZUMAB
     Dosage: 300 MILLIGRAM, Q4WEEKS
     Dates: start: 20190528
  3. VEDOLIZUMAB [Suspect]
     Active Substance: VEDOLIZUMAB
     Dosage: 300 MILLIGRAM, Q4WEEKS
  4. VEDOLIZUMAB [Suspect]
     Active Substance: VEDOLIZUMAB
     Dosage: 300 MILLIGRAM, Q4WEEKS
  5. VEDOLIZUMAB [Suspect]
     Active Substance: VEDOLIZUMAB
     Dosage: 300 MILLIGRAM, Q4WEEKS
  6. VEDOLIZUMAB [Suspect]
     Active Substance: VEDOLIZUMAB
     Dosage: 300 MILLIGRAM, Q4WEEKS
  7. VEDOLIZUMAB [Suspect]
     Active Substance: VEDOLIZUMAB
     Dosage: 300 MILLIGRAM, Q4WEEKS
  8. VEDOLIZUMAB [Suspect]
     Active Substance: VEDOLIZUMAB
     Dosage: 300 MILLIGRAM, Q4WEEKS
  9. VEDOLIZUMAB [Suspect]
     Active Substance: VEDOLIZUMAB
     Dosage: 300 MILLIGRAM, Q4WEEKS
  10. VEDOLIZUMAB [Suspect]
     Active Substance: VEDOLIZUMAB
     Dosage: 300 MILLIGRAM, Q4WEEKS
  11. VEDOLIZUMAB [Suspect]
     Active Substance: VEDOLIZUMAB
     Dosage: 300 MILLIGRAM, Q4WEEKS
  12. COLCHICINE [Suspect]
     Active Substance: COLCHICINE
     Indication: Product used for unknown indication
  13. PEMBROLIZUMAB [Suspect]
     Active Substance: PEMBROLIZUMAB
     Indication: Product used for unknown indication
  14. ESCITALOPRAM [Suspect]
     Active Substance: ESCITALOPRAM OXALATE
     Indication: Product used for unknown indication
  15. XELJANZ [Concomitant]
     Active Substance: TOFACITINIB CITRATE
     Indication: Colitis
  16. ELIQUIS [Concomitant]
     Active Substance: APIXABAN
  17. Diamicron [Concomitant]
  18. PREVACID [Concomitant]
     Active Substance: LANSOPRAZOLE
  19. CALCIUM\VITAMIN D [Concomitant]
     Active Substance: CALCIUM\VITAMIN D
  20. VITAMIN B12 [Concomitant]
     Active Substance: CYANOCOBALAMIN
  21. POLYETHYLENE GLYCOL 3350 [Concomitant]
     Active Substance: POLYETHYLENE GLYCOL 3350
  22. NAPROSYN [Concomitant]
     Active Substance: NAPROXEN
  23. PREDNISONE [Concomitant]
     Active Substance: PREDNISONE
  24. INSULIN NOS [Concomitant]
     Active Substance: INSULIN NOS

REACTIONS (20)
  - International normalised ratio increased [Unknown]
  - Myocarditis [Unknown]
  - Pericarditis [Unknown]
  - Ventricular tachycardia [Unknown]
  - Small intestinal obstruction [Unknown]
  - Immune-mediated enterocolitis [Unknown]
  - Atrial fibrillation [Unknown]
  - Drug hypersensitivity [Recovered/Resolved]
  - Diarrhoea [Unknown]
  - Localised infection [Unknown]
  - Brain fog [Unknown]
  - Skin exfoliation [Unknown]
  - Dry skin [Unknown]
  - Abdominal discomfort [Unknown]
  - Faeces hard [Unknown]
  - Rash pruritic [Unknown]
  - Rash erythematous [Recovering/Resolving]
  - Blood pressure increased [Unknown]
  - Abdominal distension [Unknown]
  - Fatigue [Unknown]

NARRATIVE: CASE EVENT DATE: 20230301
